FAERS Safety Report 16464903 (Version 6)
Quarter: 2019Q3

REPORT INFORMATION
  Report Type: Spontaneous
  Country: US (occurrence: US)
  Receive Date: 20190621
  Receipt Date: 20190802
  Transmission Date: 20191004
  Serious: Yes (Hospitalization, Other)
  Sender: FDA-Public Use
  Company Number: US-GLAXOSMITHKLINE-US2019GSK112327

PATIENT
  Sex: Female

DRUGS (4)
  1. LANSOPRAZOLE. [Suspect]
     Active Substance: LANSOPRAZOLE
     Indication: GASTROOESOPHAGEAL REFLUX DISEASE
     Dosage: 30 MG, UNK
     Route: 065
  2. PREVACID [Suspect]
     Active Substance: LANSOPRAZOLE
     Indication: GASTRIC PH DECREASED
     Dosage: UNK
     Route: 065
  3. PREVACID [Suspect]
     Active Substance: LANSOPRAZOLE
     Indication: GASTROOESOPHAGEAL REFLUX DISEASE
  4. PREVACID [Suspect]
     Active Substance: LANSOPRAZOLE
     Indication: GASTRIC PH DECREASED
     Dosage: 20 MG, QD
     Route: 065

REACTIONS (8)
  - End stage renal disease [Unknown]
  - Renal failure [Not Recovered/Not Resolved]
  - Renal injury [Unknown]
  - Nephrolithiasis [Unknown]
  - Acute kidney injury [Unknown]
  - Tubulointerstitial nephritis [Unknown]
  - Chronic kidney disease [Not Recovered/Not Resolved]
  - Renal cyst [Unknown]
